FAERS Safety Report 4446216-X (Version None)
Quarter: 2004Q3

REPORT INFORMATION
  Report Type: 
  Country: None (occurrence: None)
  Receive Date: 20040907
  Receipt Date: 20040830
  Transmission Date: 20050211
  Serious: Yes (Hospitalization)
  Sender: FDA-Public Use
  Company Number: 2004-08-1735

PATIENT
  Age: 48 Year
  Sex: Male

DRUGS (3)
  1. POTASSIUM CHLORIDE EXTENXDED RELEASE TABLET EXTENDED RELEASE TABLET [Suspect]
     Indication: MINERAL SUPPLEMENTATION
     Dosage: 20 MEQ BID ORAL
     Route: 048
     Dates: start: 20040801
  2. K-DUR 10 [Suspect]
     Indication: MINERAL SUPPLEMENTATION
     Dosage: 20 MEQ BID ORAL/YEARS
     Route: 048
  3. DEMADEX [Concomitant]

REACTIONS (2)
  - ANAPHYLACTIC SHOCK [None]
  - PHARMACEUTICAL PRODUCT COMPLAINT [None]
